FAERS Safety Report 7392710-1 (Version None)
Quarter: 2011Q2

REPORT INFORMATION
  Report Type: 
  Country: None (occurrence: None)
  Receive Date: 20110404
  Receipt Date: 20110329
  Transmission Date: 20111010
  Serious: Yes (Hospitalization)
  Sender: FDA-Public Use
  Company Number: FR-PFIZER INC-2011026617

PATIENT
  Age: 77 Year
  Sex: Male

DRUGS (8)
  1. ANDROCUR [Interacting]
     Dosage: UNK
  2. DITROPAN [Concomitant]
  3. TAHOR [Interacting]
     Dosage: UNK
  4. ATACAND [Suspect]
     Dosage: UNK
     Route: 048
     Dates: end: 20101218
  5. ZOLADEX [Concomitant]
     Dosage: UNK
  6. AMBROXOL [Concomitant]
     Dosage: UNK
  7. PREVISCAN [Concomitant]
  8. MULTAQ [Interacting]
     Indication: ATRIAL FIBRILLATION
     Dosage: UNK
     Dates: start: 20101130

REACTIONS (5)
  - CYTOLYTIC HEPATITIS [None]
  - CHOLESTASIS [None]
  - DRUG INTERACTION [None]
  - HEPATIC ENCEPHALOPATHY [None]
  - RENAL FAILURE [None]
